FAERS Safety Report 7809132-9 (Version None)
Quarter: 2011Q4

REPORT INFORMATION
  Report Type: 
  Country: None (occurrence: None)
  Receive Date: 20111012
  Receipt Date: 20111005
  Transmission Date: 20120403
  Serious: Yes (Other)
  Sender: FDA-Public Use
  Company Number: US-JNJFOC-20111003630

PATIENT
  Sex: Male
  Weight: 72.58 kg

DRUGS (4)
  1. ULTRAM [Suspect]
     Indication: SPINAL DISORDER
     Dosage: 6 TIMES DAILY
     Route: 048
     Dates: start: 20110601, end: 20110901
  2. ULTRAM [Suspect]
     Dosage: 8 TIMES DAILY
     Route: 048
     Dates: start: 19930101, end: 20110601
  3. CYMBALTA [Concomitant]
     Indication: SPINAL DISORDER
     Dosage: ONCE DAILY
     Route: 048
     Dates: start: 20060101
  4. NEURONTIN [Concomitant]
     Indication: SPINAL DISORDER
     Dosage: 4 TIMES DAILY
     Route: 048
     Dates: start: 20060101

REACTIONS (5)
  - AMNESIA [None]
  - CONVULSION [None]
  - JOINT INJURY [None]
  - MUSCLE STRAIN [None]
  - HYPERTENSION [None]
